FAERS Safety Report 11983888 (Version 7)
Quarter: 2016Q3

REPORT INFORMATION
  Report Type: Spontaneous
  Country: JP (occurrence: JP)
  Receive Date: 20160201
  Receipt Date: 20160913
  Transmission Date: 20161109
  Serious: Yes (Hospitalization, Other)
  Sender: FDA-Public Use
  Company Number: JP-TAKEDA-2016MPI000518

PATIENT
  Age: 89 Year
  Sex: Male
  Weight: 53 kg

DRUGS (93)
  1. LANDSEN [Concomitant]
     Active Substance: CLONAZEPAM
     Indication: ESSENTIAL TREMOR
     Dosage: 0.2 MG, BID
     Route: 048
     Dates: end: 20151210
  2. LANDSEN [Concomitant]
     Active Substance: CLONAZEPAM
     Dosage: 0.2 MG, BID
     Route: 048
     Dates: start: 20151211, end: 20160115
  3. XYLOCAINE [Concomitant]
     Active Substance: LIDOCAINE HYDROCHLORIDE
     Indication: CENTRAL VENOUS CATHETERISATION
     Dosage: UNK
     Route: 061
     Dates: start: 20160115, end: 20160115
  4. BIOFERMIN                          /07958301/ [Concomitant]
     Indication: PROPHYLAXIS
     Dosage: UNK, TID
     Route: 048
     Dates: end: 20151208
  5. SODIUM GUALENATE [Concomitant]
     Active Substance: SODIUM GUALENATE
     Indication: INFECTION PROPHYLAXIS
     Dosage: UNK
     Route: 065
     Dates: start: 20151216
  6. CALONAL [Concomitant]
     Active Substance: ACETAMINOPHEN
     Indication: CYTOMEGALOVIRUS INFECTION
  7. CALONAL [Concomitant]
     Active Substance: ACETAMINOPHEN
     Indication: INCISION SITE PAIN
  8. SULFAMETHOXAZOLE [Concomitant]
     Active Substance: SULFAMETHOXAZOLE
     Indication: ANTIFUNGAL PROPHYLAXIS
     Dosage: 400 MG, QD
     Route: 048
     Dates: start: 20151221, end: 20160409
  9. NORMAL SALINE [Concomitant]
     Active Substance: SODIUM CHLORIDE
     Indication: LOSS OF CONSCIOUSNESS
     Dosage: UNK
     Route: 065
  10. DENOSIN [Concomitant]
     Indication: CYTOMEGALOVIRUS INFECTION
     Dosage: 500 MG, UNK
     Route: 065
  11. ELNEOPA NO.2 [Concomitant]
     Active Substance: AMINO ACIDS\CARBOHYDRATES\ELECTROLYTES NOS\VITAMINS
     Indication: DECREASED APPETITE
     Dosage: UNK
     Route: 065
  12. DARATUMUMAB [Suspect]
     Active Substance: DARATUMUMAB
     Indication: PLASMA CELL MYELOMA
     Dosage: 880 MG, Q3WEEKS
     Route: 042
     Dates: start: 20151215, end: 20160215
  13. BONOTEO [Concomitant]
     Active Substance: MINODRONIC ACID
     Indication: OSTEOPOROSIS
     Dosage: 50 MG, MONTHLY
     Route: 048
     Dates: start: 20151127
  14. URIMOX [Concomitant]
     Indication: DRY SKIN
     Dosage: UNK
     Route: 061
     Dates: start: 20151202
  15. FEBURIC [Concomitant]
     Active Substance: FEBUXOSTAT
     Indication: HYPERURICAEMIA
     Dosage: 40 MG, QD
     Route: 048
     Dates: end: 20160115
  16. BFLUID [Concomitant]
     Active Substance: AMINO ACIDS\DEXTROSE\ELECTROLYTES NOS\VITAMINS
     Indication: DIARRHOEA
     Dosage: 1000 ML, QD
     Route: 042
     Dates: start: 20160111, end: 20160111
  17. PERAPRIN [Concomitant]
     Active Substance: METOCLOPRAMIDE
     Indication: NAUSEA
     Dosage: 5 MG, UNK
     Route: 048
     Dates: start: 20151221, end: 20151221
  18. LOPERAMIDE                         /00384302/ [Concomitant]
     Dosage: 1 MG, BID
     Route: 048
     Dates: start: 20160215, end: 20160217
  19. SOLYUGEN F [Concomitant]
     Indication: DIARRHOEA
     Dosage: 500 ML, UNK
     Route: 042
     Dates: start: 20151220, end: 20151220
  20. TRIMETHOPRIM. [Concomitant]
     Active Substance: TRIMETHOPRIM
     Indication: ANTIFUNGAL PROPHYLAXIS
     Dosage: 80 MG, QD
     Route: 048
     Dates: start: 20151221, end: 20160409
  21. PLATELETS [Concomitant]
     Active Substance: HUMAN PLATELET, ALLOGENIC
     Indication: THROMBOCYTOPENIA
     Dosage: UNK
     Route: 065
  22. RAPIACTA [Concomitant]
     Active Substance: PERAMIVIR
     Indication: INFLUENZA
     Dosage: UNK
     Route: 065
  23. SENNOSIDE                          /00571902/ [Concomitant]
     Active Substance: SENNOSIDES A AND B
     Indication: CONSTIPATION
     Dosage: 12 MG, UNK
     Route: 048
     Dates: start: 20151230, end: 20160102
  24. DAIKENCHUTO [Concomitant]
     Active Substance: HERBALS
     Dosage: 2.5 G, UNK
     Route: 048
     Dates: start: 20160102, end: 20160121
  25. ACETAMINOPHEN. [Concomitant]
     Active Substance: ACETAMINOPHEN
     Indication: NASOPHARYNGITIS
     Dosage: 325 MG, TID
     Route: 048
     Dates: end: 20160115
  26. NAUZELIN [Concomitant]
     Active Substance: DOMPERIDONE
     Indication: PROPHYLAXIS OF NAUSEA AND VOMITING
     Dosage: 0.5 G, BID
     Route: 048
     Dates: end: 20151208
  27. VITAMEDIN INTRAVENOUS [Concomitant]
     Active Substance: CYANOCOBALAMIN\PYRIDOXINE HYDROCHLORIDE\THIAMINE
     Indication: DIARRHOEA
     Dosage: UNK, QD
     Route: 042
     Dates: start: 20151223, end: 20151223
  28. LACTEC D                           /00895301/ [Concomitant]
     Indication: DIARRHOEA
     Dosage: 500 ML, QD
     Route: 042
     Dates: start: 20160112, end: 20160112
  29. PROMETHAZINE METHYLENE DISALICYLATE [Concomitant]
     Indication: NASOPHARYNGITIS
     Dosage: 13.5 MG, TID
     Route: 048
     Dates: start: 20160109, end: 20160111
  30. LOXONIN [Concomitant]
     Active Substance: LOXOPROFEN SODIUM
     Indication: ABDOMINAL TENDERNESS
     Dosage: 60 MG, UNK
     Route: 048
     Dates: start: 20160111, end: 20160111
  31. ELNEOPA NO.1 [Concomitant]
     Indication: DECREASED APPETITE
     Dosage: 1500 ML, QD
     Route: 042
     Dates: start: 20160115, end: 20160117
  32. K-SUPPLY [Concomitant]
     Active Substance: POTASSIUM CHLORIDE
     Indication: HYPOKALAEMIA
     Dosage: 600 MG, BID
     Route: 048
     Dates: start: 20160105, end: 20160112
  33. CHLORHEXIDINE GLUCONATE. [Concomitant]
     Active Substance: CHLORHEXIDINE GLUCONATE
     Indication: SKIN ABRASION
     Dosage: UNK
     Route: 061
     Dates: start: 20160106, end: 20160109
  34. SALICYLAMIDE [Concomitant]
     Active Substance: SALICYLAMIDE
     Indication: NASOPHARYNGITIS
     Dosage: 270 MG, TID
     Route: 048
     Dates: start: 20160109, end: 20160111
  35. SODIUM CHLORIDE. [Concomitant]
     Active Substance: SODIUM CHLORIDE
     Indication: HYPONATRAEMIA
     Dosage: 500 ML, BID
     Route: 042
     Dates: start: 20160101, end: 20160103
  36. LEVOFLOXACIN. [Concomitant]
     Active Substance: LEVOFLOXACIN
     Indication: URINARY TRACT INFECTION
     Dosage: UNK
     Route: 065
  37. ANHYDROUS CAFFEINE [Concomitant]
     Active Substance: CAFFEINE
     Indication: NASOPHARYNGITIS
     Dosage: 60 MG, TID
     Route: 048
     Dates: start: 20160109, end: 20160111
  38. RINDERON VG [Concomitant]
     Active Substance: BETAMETHASONE VALERATE\GENTAMICIN SULFATE
     Indication: HERPES ZOSTER DISSEMINATED
     Dosage: UNK
     Route: 061
     Dates: start: 20160514, end: 20160514
  39. VELCADE [Suspect]
     Active Substance: BORTEZOMIB
     Dosage: 1 MG, UNK
     Route: 058
     Dates: start: 20160105
  40. MELPHALAN [Suspect]
     Active Substance: MELPHALAN
     Indication: PLASMA CELL MYELOMA
     Dosage: 14 MG, QD
     Route: 048
     Dates: start: 20151215, end: 20151218
  41. TELEMINSOFT [Concomitant]
     Active Substance: BISACODYL
     Dosage: 10 MG, UNK
     Route: 054
     Dates: start: 20160102, end: 20160107
  42. DAIKENCHUTO [Concomitant]
     Active Substance: HERBALS
     Indication: CONSTIPATION
     Dosage: 2.5 G, UNK
     Route: 048
     Dates: end: 20151218
  43. PURSENNID                          /00571902/ [Concomitant]
     Active Substance: SENNOSIDES A AND B
     Indication: CONSTIPATION
     Dosage: 24 MG, UNK
     Route: 048
     Dates: end: 20151218
  44. CALONAL [Concomitant]
     Active Substance: ACETAMINOPHEN
     Indication: INFLUENZA
     Dosage: 400 MG, UNK
     Route: 048
     Dates: start: 20160220, end: 20160311
  45. CALONAL [Concomitant]
     Active Substance: ACETAMINOPHEN
     Indication: SPINAL COMPRESSION FRACTURE
  46. MOHRUS [Concomitant]
     Active Substance: KETOPROFEN
     Indication: SPINAL COMPRESSION FRACTURE
     Dosage: 40 MG, UNK
     Route: 061
     Dates: end: 20151228
  47. BFLUID [Concomitant]
     Active Substance: AMINO ACIDS\DEXTROSE\ELECTROLYTES NOS\VITAMINS
     Indication: PROPHYLAXIS AGAINST DEHYDRATION
     Dosage: 1000 ML, QD
     Route: 042
     Dates: start: 20151221, end: 20151221
  48. VITAMEDIN INTRAVENOUS [Concomitant]
     Active Substance: CYANOCOBALAMIN\PYRIDOXINE HYDROCHLORIDE\THIAMINE
     Indication: PROPHYLAXIS AGAINST DEHYDRATION
     Dosage: UNK, QD
     Route: 042
     Dates: start: 20151221, end: 20151221
  49. LACTEC D                           /00895301/ [Concomitant]
     Indication: DECREASED APPETITE
     Dosage: 500 ML, QD
     Route: 042
     Dates: start: 20151224, end: 20151224
  50. CAFEINE [Concomitant]
     Active Substance: CAFFEINE
     Indication: NASOPHARYNGITIS
     Dosage: UNK
     Route: 065
  51. MAGMITT [Concomitant]
     Active Substance: MAGNESIUM OXIDE
     Indication: CONSTIPATION
     Dosage: 330 MG, UNK
     Route: 048
     Dates: start: 20160104
  52. LOPERAMIDE                         /00384302/ [Concomitant]
     Dosage: 1 MG, UNK
     Route: 048
     Dates: start: 20160105, end: 20160109
  53. FUROSEMIDE. [Concomitant]
     Active Substance: FUROSEMIDE
     Dosage: 20 MG, QD
     Route: 042
     Dates: start: 20160121, end: 20160123
  54. SULFAMETHOXAZOLE AND TRIMETHOPRIM [Concomitant]
     Active Substance: SULFAMETHOXAZOLE\TRIMETHOPRIM
     Indication: ANTIFUNGAL PROPHYLAXIS
     Dosage: UNK, QD
     Route: 048
     Dates: start: 20160418
  55. RIBOFLAVIN [Concomitant]
     Active Substance: RIBOFLAVIN
     Indication: LUMBAR SPINAL STENOSIS
     Dosage: 2.5 MG, TID
     Route: 048
     Dates: end: 20160121
  56. ACETAMINOPHEN. [Concomitant]
     Active Substance: ACETAMINOPHEN
     Indication: SPINAL COMPRESSION FRACTURE
  57. ZOFRAN [Concomitant]
     Active Substance: ONDANSETRON HYDROCHLORIDE
     Indication: PROPHYLAXIS OF NAUSEA AND VOMITING
     Dosage: 4 MG, UNK
     Route: 048
     Dates: start: 20151215
  58. CALONAL [Concomitant]
     Active Substance: ACETAMINOPHEN
     Indication: NASOPHARYNGITIS
     Dosage: 400 MG, UNK
     Route: 048
     Dates: start: 20160108, end: 20160122
  59. CALONAL [Concomitant]
     Active Substance: ACETAMINOPHEN
     Indication: BRONCHITIS
     Dosage: 400 MG, UNK
     Route: 048
     Dates: start: 20160219, end: 20160219
  60. BFLUID [Concomitant]
     Active Substance: AMINO ACIDS\DEXTROSE\ELECTROLYTES NOS\VITAMINS
     Indication: MALNUTRITION
     Dosage: 1000 ML, QD
     Route: 042
     Dates: start: 20160113, end: 20160114
  61. ZOVIRAX [Concomitant]
     Active Substance: ACYCLOVIR
     Indication: ANTIVIRAL PROPHYLAXIS
     Dosage: 200 MG, QD
     Route: 048
     Dates: start: 20151221, end: 20160215
  62. CHLORHEXIDINE GLUCONATE. [Concomitant]
     Active Substance: CHLORHEXIDINE GLUCONATE
     Indication: SKIN EROSION
     Dosage: UNK
     Route: 061
     Dates: start: 20160328
  63. SODIUM CHLORIDE. [Concomitant]
     Active Substance: SODIUM CHLORIDE
     Indication: LOSS OF CONSCIOUSNESS
     Dosage: 4 MG, QD
     Route: 042
     Dates: start: 20160118, end: 20160124
  64. SODIUM CHLORIDE. [Concomitant]
     Active Substance: SODIUM CHLORIDE
     Dosage: UNK
     Route: 065
  65. FUROSEMIDE. [Concomitant]
     Active Substance: FUROSEMIDE
     Indication: PLEURAL EFFUSION
     Dosage: 20 MG, QD
     Route: 042
     Dates: start: 20160125, end: 20160127
  66. BROTIZOLAM [Concomitant]
     Active Substance: BROTIZOLAM
     Indication: INSOMNIA
     Dosage: 0.25 MG, UNK
     Route: 048
     Dates: start: 20160124, end: 20160224
  67. GANCICLOVIR. [Concomitant]
     Active Substance: GANCICLOVIR
     Indication: CYTOMEGALOVIRUS INFECTION
     Dosage: 250 MG, BID
     Route: 042
     Dates: start: 20160118, end: 20160127
  68. CALONAL [Concomitant]
     Active Substance: ACETAMINOPHEN
     Indication: PYREXIA
  69. BFLUID [Concomitant]
     Active Substance: AMINO ACIDS\DEXTROSE\ELECTROLYTES NOS\VITAMINS
     Indication: DECREASED APPETITE
     Dosage: 500 ML, QD
     Route: 042
     Dates: start: 20151223, end: 20151223
  70. LACTEC D                           /00895301/ [Concomitant]
     Indication: ORTHOSTATIC INTOLERANCE
     Dosage: 500 ML, UNK
     Route: 042
     Dates: start: 20160414, end: 20160414
  71. LOPERAMIDE                         /00384302/ [Concomitant]
     Indication: ANTIDIARRHOEAL SUPPORTIVE CARE
     Dosage: 1 MG, BID
     Route: 048
     Dates: start: 20151225, end: 20151227
  72. VELCADE [Suspect]
     Active Substance: BORTEZOMIB
     Indication: PLASMA CELL MYELOMA
     Dosage: 1.6 MG, 2/WEEK
     Route: 058
     Dates: start: 20151215
  73. VELCADE [Suspect]
     Active Substance: BORTEZOMIB
     Dosage: UNK
     Route: 058
     Dates: end: 20160222
  74. PREDNISOLONE. [Suspect]
     Active Substance: PREDNISOLONE
     Indication: PLASMA CELL MYELOMA
     Dosage: 95 MG, QD
     Route: 048
     Dates: start: 20151216, end: 20151218
  75. TELEMINSOFT [Concomitant]
     Active Substance: BISACODYL
     Indication: CONSTIPATION
     Dosage: 10 MG, UNK
     Route: 054
     Dates: start: 20151208, end: 20151208
  76. CYANOCOBALAMIN. [Concomitant]
     Active Substance: CYANOCOBALAMIN
     Indication: LUMBAR SPINAL STENOSIS
     Dosage: 0.25 MG, TID
     Route: 048
     Dates: end: 20160121
  77. BIOFERMIN                          /07958301/ [Concomitant]
     Indication: ENTEROCOLITIS
  78. CALONAL [Concomitant]
     Active Substance: ACETAMINOPHEN
     Indication: URINARY TRACT INFECTION
  79. ELNEOPA NO.1 [Concomitant]
     Dosage: 1500 ML, QD
     Route: 042
     Dates: start: 20160118, end: 20160131
  80. STREPTOCOCCUS FAECALIS [Concomitant]
     Active Substance: STREPTOCOCCUS FAECALIS
     Indication: DIARRHOEA
     Dosage: UNK
     Route: 065
  81. SODIUM CHLORIDE. [Concomitant]
     Active Substance: SODIUM CHLORIDE
     Dosage: 2 MG, QD
     Route: 042
     Dates: start: 20160125, end: 20160127
  82. KETOPROFEN. [Concomitant]
     Active Substance: KETOPROFEN
     Indication: LUMBAR SPINAL STENOSIS
     Dosage: 40 MG, UNK
     Route: 061
     Dates: start: 20160206
  83. ACETAMINOPHEN. [Concomitant]
     Active Substance: ACETAMINOPHEN
     Indication: NASOPHARYNGITIS
     Dosage: 150 MG, TID
     Route: 048
     Dates: start: 20160109, end: 20160111
  84. LIMAPROST ALFADEX [Concomitant]
     Active Substance: LIMAPROST
     Indication: LUMBAR SPINAL STENOSIS
     Dosage: 5 MG, TID
     Route: 048
     Dates: start: 20151208, end: 20160121
  85. TRAMADOL HYDROCHLORIDE. [Concomitant]
     Active Substance: TRAMADOL HYDROCHLORIDE
     Indication: SPINAL COMPRESSION FRACTURE
     Dosage: 3.75 MG, TID
     Route: 048
     Dates: end: 20160115
  86. VITAMINS NOS [Concomitant]
     Active Substance: VITAMINS
     Indication: LUMBAR SPINAL STENOSIS
     Dosage: 5 MG, TID
     Route: 048
     Dates: end: 20151207
  87. PYRIDOXINE HYDROCHLORIDE. [Concomitant]
     Active Substance: PYRIDOXINE HYDROCHLORIDE
     Indication: LUMBAR SPINAL STENOSIS
     Dosage: 40 MG, TID
     Route: 048
     Dates: end: 20160121
  88. OCTOTIAMINE [Concomitant]
     Active Substance: OCTOTIAMINE
     Indication: LUMBAR SPINAL STENOSIS
     Dosage: 25 MG, TID
     Route: 048
     Dates: end: 20160121
  89. VITAMEDIN INTRAVENOUS [Concomitant]
     Active Substance: CYANOCOBALAMIN\PYRIDOXINE HYDROCHLORIDE\THIAMINE
     Indication: MALNUTRITION
     Dosage: UNK, QD
     Route: 042
     Dates: start: 20160111, end: 20160111
  90. VITAMEDIN INTRAVENOUS [Concomitant]
     Active Substance: CYANOCOBALAMIN\PYRIDOXINE HYDROCHLORIDE\THIAMINE
     Indication: DECREASED APPETITE
     Dosage: UNK, QD
     Route: 042
     Dates: start: 20160113, end: 20160114
  91. CLOSTRIDIUM BUTYRICUM [Concomitant]
     Active Substance: CLOSTRIDIUM BUTYRICUM SPORES STRAIN M-55
     Indication: DIARRHOEA
     Dosage: UNK
     Route: 065
  92. ZOVIRAX [Concomitant]
     Active Substance: ACYCLOVIR
     Dosage: 200 MG, QD
     Route: 048
     Dates: start: 20160531
  93. VALIXA [Concomitant]
     Active Substance: VALGANCICLOVIR
     Indication: ANTIVIRAL PROPHYLAXIS
     Dosage: 450 MG, QD
     Route: 048
     Dates: start: 20160216, end: 20160409

REACTIONS (19)
  - Cytomegalovirus infection [Recovered/Resolved]
  - Skin abrasion [Unknown]
  - Decreased appetite [Unknown]
  - Loss of consciousness [Unknown]
  - Incision site pain [Unknown]
  - Thrombocytopenia [Not Recovered/Not Resolved]
  - Diarrhoea [Unknown]
  - Pleural effusion [Unknown]
  - Hyponatraemia [Unknown]
  - Orthostatic intolerance [Unknown]
  - Skin erosion [Unknown]
  - Urinary tract infection [Unknown]
  - Nausea [Unknown]
  - Abdominal tenderness [Unknown]
  - Insomnia [Unknown]
  - Pyrexia [Unknown]
  - Hypokalaemia [Unknown]
  - Herpes zoster [Unknown]
  - Influenza [Recovered/Resolved]

NARRATIVE: CASE EVENT DATE: 20151219
